FAERS Safety Report 7035940-0 (Version None)
Quarter: 2010Q4

REPORT INFORMATION
  Report Type: 
  Country: None (occurrence: None)
  Receive Date: 20101008
  Receipt Date: 20100930
  Transmission Date: 20110411
  Serious: Yes (Other)
  Sender: FDA-Public Use
  Company Number: BR-ABBOTT-10P-020-0675240-00

PATIENT
  Sex: Male
  Weight: 75.5 kg

DRUGS (4)
  1. DEPAKOTE [Suspect]
     Indication: EPILEPSY
     Route: 048
     Dates: start: 20090701
  2. GARDENAL [Concomitant]
     Indication: EPILEPSY
     Route: 048
     Dates: start: 20090701
  3. LANTUS [Concomitant]
     Indication: DIABETES MELLITUS
     Route: 058
     Dates: start: 20080101
  4. INSULIN ASPARTAME [Concomitant]
     Indication: DIABETES MELLITUS
     Dosage: ACCORDING TO GLUCOSE ALTERATION
     Route: 058
     Dates: start: 20050101

REACTIONS (6)
  - AMNESIA [None]
  - CONVULSION [None]
  - DRUG INEFFECTIVE [None]
  - HEADACHE [None]
  - NOCTURIA [None]
  - THYROID DISORDER [None]
